FAERS Safety Report 9189509 (Version 1)
Quarter: 2013Q1

REPORT INFORMATION
  Report Type: Spontaneous
  Country: SE (occurrence: SE)
  Receive Date: 20130326
  Receipt Date: 20130326
  Transmission Date: 20140127
  Serious: Yes (Other)
  Sender: FDA-Public Use
  Company Number: SE-JNJFOC-20130311551

PATIENT
  Age: 42 Year
  Sex: Female

DRUGS (5)
  1. EVRA [Suspect]
     Indication: CONTRACEPTION
     Route: 062
  2. EVRA [Suspect]
     Indication: CONTRACEPTION
     Route: 062
     Dates: start: 2011
  3. PRONAXEN [Concomitant]
     Route: 065
  4. ATARAX [Concomitant]
     Route: 065
  5. MOVICOL [Concomitant]
     Route: 065

REACTIONS (1)
  - Parathyroid tumour benign [Unknown]
